FAERS Safety Report 10308762 (Version 2)
Quarter: 2014Q4

REPORT INFORMATION
  Report Type: Spontaneous
  Country: IT (occurrence: IT)
  Receive Date: 20140716
  Receipt Date: 20141204
  Transmission Date: 20150528
  Serious: Yes (Hospitalization)
  Sender: FDA-Public Use
  Company Number: IT-TEVA-493801ISR

PATIENT
  Age: 33 Year
  Sex: Female

DRUGS (5)
  1. LORAZEPAM. [Suspect]
     Active Substance: LORAZEPAM
     Indication: INSOMNIA
     Dosage: 10 MG TOTAL
     Route: 048
     Dates: start: 20140627, end: 20140627
  2. VALDORM - 15 MG CAPSULE - VALEAS SPA [Suspect]
     Active Substance: FLURAZEPAM HYDROCHLORIDE
     Indication: INSOMNIA
     Dosage: 90 MG TOTAL
     Route: 048
     Dates: start: 20140627, end: 20140627
  3. TALOFEN [Suspect]
     Active Substance: PROMAZINE HYDROCHLORIDE
     Indication: INSOMNIA
     Dosage: 100 GTT TOTAL
     Route: 048
     Dates: start: 20140627, end: 20140627
  4. LYRICA [Suspect]
     Active Substance: PREGABALIN
     Indication: INSOMNIA
     Dosage: 150 MG TOTAL
     Route: 048
     Dates: start: 20140627, end: 20140627
  5. ZYPREXA [Suspect]
     Active Substance: OLANZAPINE
     Indication: INSOMNIA
     Dosage: 2.5 MG TOTAL
     Route: 048
     Dates: start: 20140627, end: 20140627

REACTIONS (2)
  - Sopor [Recovering/Resolving]
  - Drug abuse [Recovering/Resolving]

NARRATIVE: CASE EVENT DATE: 20140627
